FAERS Safety Report 24904671 (Version 1)
Quarter: 2025Q1

REPORT INFORMATION
  Report Type: Spontaneous
  Country: US (occurrence: US)
  Receive Date: 20250130
  Receipt Date: 20250130
  Transmission Date: 20250409
  Serious: No
  Sender: Tarsus Pharmaceuticals
  Company Number: US-TARSUS PHARMACEUTICALS-TSP-US-2024-000569

PATIENT
  Age: 74 Year
  Sex: Male

DRUGS (3)
  1. XDEMVY [Suspect]
     Active Substance: LOTILANER
     Indication: Demodex blepharitis
     Dosage: 1 DROP INTO BOTH EYES TWICE A DAY
     Route: 047
     Dates: start: 20241117, end: 20241120
  2. LOPERAMIDE [Concomitant]
     Active Substance: LOPERAMIDE
     Indication: Product used for unknown indication
     Route: 065
  3. DICYCLOMINE [Concomitant]
     Active Substance: DICYCLOMINE HYDROCHLORIDE
     Indication: Product used for unknown indication
     Route: 065

REACTIONS (9)
  - Drug hypersensitivity [Unknown]
  - Eye pruritus [Unknown]
  - Eye irritation [Unknown]
  - Crying [Unknown]
  - Metamorphopsia [Unknown]
  - Feeling abnormal [Unknown]
  - Condition aggravated [Unknown]
  - Lacrimation increased [Unknown]
  - Vision blurred [Unknown]

NARRATIVE: CASE EVENT DATE: 20241101
